FAERS Safety Report 6238741-6 (Version None)
Quarter: 2009Q2

REPORT INFORMATION
  Report Type: 
  Country: None (occurrence: None)
  Receive Date: 20090618
  Receipt Date: 20090603
  Transmission Date: 20091009
  Serious: Yes (Other)
  Sender: FDA-Public Use
  Company Number: 297808

PATIENT
  Age: 18 Year
  Sex: Female

DRUGS (4)
  1. METHOTREXATE [Suspect]
     Indication: ACUTE LYMPHOCYTIC LEUKAEMIA
     Dosage: 12 MG, 1 MONTH, INTRATHECAL
     Route: 037
     Dates: start: 20090210, end: 20090317
  2. MERCAPTOPURINE [Concomitant]
  3. CYCLOPHOSPHAMIDE [Concomitant]
  4. CYTARABINE [Concomitant]

REACTIONS (3)
  - DYSPHASIA [None]
  - MUSCULAR WEAKNESS [None]
  - TOXIC ENCEPHALOPATHY [None]
